FAERS Safety Report 7793522-7 (Version None)
Quarter: 2011Q4

REPORT INFORMATION
  Report Type: 
  Country: None (occurrence: None)
  Receive Date: 20111003
  Receipt Date: 20110613
  Transmission Date: 20120403
  Serious: No
  Sender: FDA-Public Use
  Company Number: US-BAYER-2011-051317

PATIENT
  Age: 66 Year
  Sex: Female

DRUGS (4)
  1. CIPROFLOXACIN [Suspect]
     Indication: INFECTION
     Dosage: UNK
     Route: 048
     Dates: start: 20100101
  2. DIOVAN [Concomitant]
  3. CRESTOR [Concomitant]
  4. ALLERGY MEDICATION [Concomitant]

REACTIONS (2)
  - LIMB DISCOMFORT [None]
  - MUSCULOSKELETAL PAIN [None]
